FAERS Safety Report 9395475 (Version 2)
Quarter: 2013Q3

REPORT INFORMATION
  Report Type: Spontaneous
  Country: US (occurrence: US)
  Receive Date: 20130711
  Receipt Date: 20130813
  Transmission Date: 20140515
  Serious: Yes (Other)
  Sender: FDA-Public Use
  Company Number: US-BAYER-2013-082470

PATIENT
  Age: 76 Year
  Sex: Female
  Weight: 68 kg

DRUGS (5)
  1. PHILLIPS^ COLON HEALTH [Suspect]
     Dosage: 1 DF, QD
     Route: 048
     Dates: start: 201303, end: 201307
  2. TRUBIOTICS [Suspect]
     Dosage: 1 DF, QD
     Route: 048
     Dates: start: 201307, end: 201307
  3. BAYER EXTRA STRENGTH BACK + BODY PAIN [Suspect]
     Dosage: 1 DF, BID
     Route: 048
     Dates: start: 2012
  4. CHLORTHALIDONE [Concomitant]
  5. SYNTHROID [Concomitant]

REACTIONS (8)
  - Aphagia [Recovered/Resolved]
  - Inappropriate schedule of drug administration [None]
  - Eczema [Recovered/Resolved]
  - Rash [Not Recovered/Not Resolved]
  - Dry mouth [Recovered/Resolved]
  - Flushing [Recovered/Resolved]
  - Blood cholesterol decreased [None]
  - Therapeutic response unexpected [None]
